FAERS Safety Report 7842308-3 (Version None)
Quarter: 2011Q4

REPORT INFORMATION
  Report Type: 
  Country: None (occurrence: None)
  Receive Date: 20111025
  Receipt Date: 20111020
  Transmission Date: 20120403
  Serious: Yes (Hospitalization)
  Sender: FDA-Public Use
  Company Number: CA-B.I. PHARMACEUTICALS,INC./RIDGEFIELD-2011-CN-01604CN

PATIENT
  Age: 83 Year
  Sex: Female

DRUGS (2)
  1. WARFARIN SODIUM [Concomitant]
     Dates: start: 20111012
  2. PRADAXA [Suspect]
     Dates: end: 20111010

REACTIONS (2)
  - HAEMORRHAGIC TRANSFORMATION STROKE [None]
  - ISCHAEMIC STROKE [None]
